FAERS Safety Report 5526004-3 (Version None)
Quarter: 2007Q4

REPORT INFORMATION
  Report Type: 
  Country: None (occurrence: None)
  Receive Date: 20071126
  Receipt Date: 20071109
  Transmission Date: 20080405
  Serious: No
  Sender: FDA-Public Use
  Company Number: US-BOEHRINGER INGELHEIM PHARMACEUTICALS, INC.-2007-BP-24357BP

PATIENT
  Sex: Female

DRUGS (5)
  1. SPIRIVA [Suspect]
     Indication: CHRONIC OBSTRUCTIVE PULMONARY DISEASE
     Route: 055
     Dates: start: 20070901
  2. METFORMIN HCL [Concomitant]
     Indication: DIABETES MELLITUS
  3. GLYBURIDE [Concomitant]
     Indication: DIABETES MELLITUS
  4. BENAZEPRIL HYDROCHLORIDE [Concomitant]
     Indication: HYPERTENSION
  5. GABAPERTIN [Concomitant]
     Indication: NEUROPATHY

REACTIONS (2)
  - EPISTAXIS [None]
  - NASAL DISCOMFORT [None]
